FAERS Safety Report 17139896 (Version 10)
Quarter: 2021Q3

REPORT INFORMATION
  Report Type: Report from Study
  Country: None (occurrence: US)
  Receive Date: 20191211
  Receipt Date: 20210819
  Transmission Date: 20211014
  Serious: Yes (Hospitalization, Other)
  Sender: FDA-Public Use
  Company Number: US-ABBVIE-19K-163-3186500-00

PATIENT
  Age: 68 Year
  Sex: Female
  Weight: 55.2 kg

DRUGS (39)
  1. IMBRUVICA [Suspect]
     Active Substance: IBRUTINIB
     Route: 048
     Dates: start: 20170919, end: 20170929
  2. VENTOLIN HFA [Concomitant]
     Active Substance: ALBUTEROL SULFATE
     Indication: DYSPNOEA
     Route: 048
     Dates: start: 20180920, end: 20190521
  3. FOLIC ACID. [Concomitant]
     Active Substance: FOLIC ACID
     Indication: ROUTINE HEALTH MAINTENANCE
     Route: 048
     Dates: start: 20170807, end: 20170808
  4. CALCIUM CARBONATE. [Concomitant]
     Active Substance: CALCIUM CARBONATE
     Indication: ROUTINE HEALTH MAINTENANCE
     Route: 048
     Dates: start: 20120510, end: 20190510
  5. IMBRUVICA [Suspect]
     Active Substance: IBRUTINIB
     Indication: CHRONIC LYMPHOCYTIC LEUKAEMIA
     Route: 048
     Dates: start: 20170822, end: 20170914
  6. BENDAMUSTINE [Concomitant]
     Active Substance: BENDAMUSTINE
     Indication: PRODUCT USED FOR UNKNOWN INDICATION
     Route: 042
     Dates: start: 20171004, end: 20171102
  7. RITUXIMAB. [Concomitant]
     Active Substance: RITUXIMAB
     Route: 042
     Dates: start: 20171101, end: 20180221
  8. PREDNISONE. [Concomitant]
     Active Substance: PREDNISONE
     Indication: HAEMOLYTIC ANAEMIA
     Route: 048
     Dates: start: 20170816, end: 20170830
  9. PREDNISONE. [Concomitant]
     Active Substance: PREDNISONE
     Route: 048
     Dates: start: 20170830, end: 20171004
  10. PRAVASTATIN. [Concomitant]
     Active Substance: PRAVASTATIN
     Indication: HYPERLIPIDAEMIA
     Route: 048
     Dates: start: 20170808, end: 20170907
  11. BENDAMUSTINE [Concomitant]
     Active Substance: BENDAMUSTINE
     Route: 042
     Dates: start: 20180124, end: 20180222
  12. ZOLPIDEM [Concomitant]
     Active Substance: ZOLPIDEM TARTRATE
     Indication: INSOMNIA
     Route: 048
     Dates: start: 20170830, end: 20190424
  13. NEULASTA [Concomitant]
     Active Substance: PEGFILGRASTIM
     Indication: PROPHYLAXIS
     Route: 030
     Dates: start: 20171102, end: 20171102
  14. PEPCID [Concomitant]
     Active Substance: FAMOTIDINE
     Indication: PROPHYLAXIS
     Route: 048
     Dates: start: 20171004, end: 20171004
  15. ALLOPURINOL. [Concomitant]
     Active Substance: ALLOPURINOL
     Indication: BLOOD URIC ACID INCREASED
     Route: 048
     Dates: start: 20171005
  16. ZYRTEC [Concomitant]
     Active Substance: CETIRIZINE HYDROCHLORIDE
     Indication: PROPHYLAXIS
     Route: 048
     Dates: start: 20171004, end: 20171004
  17. ACETAMINOPHEN. [Concomitant]
     Active Substance: ACETAMINOPHEN
     Indication: PROPHYLAXIS
     Route: 048
     Dates: start: 20171004, end: 20171004
  18. RITUXIMAB. [Concomitant]
     Active Substance: RITUXIMAB
     Route: 042
     Dates: start: 20171101, end: 20180221
  19. PREDNISONE. [Concomitant]
     Active Substance: PREDNISONE
     Route: 048
     Dates: start: 20171019, end: 20190401
  20. SOLU?MEDROL [Concomitant]
     Active Substance: METHYLPREDNISOLONE SODIUM SUCCINATE
     Indication: PROPHYLAXIS
     Route: 042
     Dates: start: 20171004, end: 20171004
  21. PRILOSEC [Concomitant]
     Active Substance: OMEPRAZOLE MAGNESIUM
     Indication: DYSPEPSIA
     Route: 048
     Dates: start: 20120510, end: 20190524
  22. AMBIEN [Concomitant]
     Active Substance: ZOLPIDEM TARTRATE
     Indication: INSOMNIA
     Route: 048
     Dates: start: 20170830, end: 20190424
  23. ASPIRIN. [Concomitant]
     Active Substance: ASPIRIN
     Indication: CARDIOVASCULAR EVENT PROPHYLAXIS
     Dates: start: 20110627
  24. DECADRON [Concomitant]
     Active Substance: DEXAMETHASONE
     Indication: PROPHYLAXIS OF NAUSEA AND VOMITING
     Route: 048
     Dates: start: 20171101, end: 20171101
  25. NYSTATIN. [Concomitant]
     Active Substance: NYSTATIN
     Indication: STOMATITIS
     Route: 048
     Dates: start: 20170926, end: 20171002
  26. LASIX [Concomitant]
     Active Substance: FUROSEMIDE
     Indication: OEDEMA
     Route: 048
     Dates: start: 20180201, end: 20180201
  27. ONDANSETRON HCL [Concomitant]
     Active Substance: ONDANSETRON HYDROCHLORIDE
     Indication: PROPHYLAXIS OF NAUSEA AND VOMITING
     Route: 048
     Dates: start: 20171005, end: 20171005
  28. RITUXIMAB. [Concomitant]
     Active Substance: RITUXIMAB
     Indication: PRODUCT USED FOR UNKNOWN INDICATION
     Route: 042
     Dates: start: 20171004, end: 20171004
  29. PREDNISONE. [Concomitant]
     Active Substance: PREDNISONE
     Route: 048
     Dates: start: 20171004, end: 20171012
  30. OXYGEN. [Concomitant]
     Active Substance: OXYGEN
     Indication: DYSPNOEA
     Route: 045
     Dates: start: 20170914, end: 20170918
  31. PREDNISONE. [Concomitant]
     Active Substance: PREDNISONE
     Indication: HAEMOLYTIC ANAEMIA
     Route: 048
     Dates: start: 20170807, end: 20170830
  32. ZOFRAN [Concomitant]
     Active Substance: ONDANSETRON HYDROCHLORIDE
     Indication: PROPHYLAXIS OF NAUSEA AND VOMITING
     Route: 048
     Dates: start: 20171004, end: 20171005
  33. BENDAMUSTINE [Concomitant]
     Active Substance: BENDAMUSTINE
     Route: 042
     Dates: start: 20171129, end: 20171130
  34. BENDAMUSTINE [Concomitant]
     Active Substance: BENDAMUSTINE
     Route: 042
     Dates: start: 20171227, end: 20171228
  35. PREDNISONE. [Concomitant]
     Active Substance: PREDNISONE
     Route: 048
     Dates: start: 20171012, end: 20171019
  36. OXYGEN. [Concomitant]
     Active Substance: OXYGEN
     Dates: start: 20170915
  37. METOPROLOL. [Concomitant]
     Active Substance: METOPROLOL
     Indication: HYPERTENSION
     Route: 048
     Dates: start: 20161031, end: 20170804
  38. ATENOLOL. [Concomitant]
     Active Substance: ATENOLOL
     Indication: HYPERTENSION
     Route: 048
     Dates: start: 20170810
  39. PALONOSETRON HCL [Concomitant]
     Active Substance: PALONOSETRON HYDROCHLORIDE
     Indication: PROPHYLAXIS OF NAUSEA AND VOMITING
     Route: 042
     Dates: start: 20171004, end: 20171004

REACTIONS (3)
  - Pneumonia [Recovered/Resolved]
  - Pulmonary toxicity [Recovered/Resolved]
  - Pneumonia [Recovered/Resolved]

NARRATIVE: CASE EVENT DATE: 20170916
